FAERS Safety Report 4994982-7 (Version None)
Quarter: 2006Q2

REPORT INFORMATION
  Report Type: 
  Country: None (occurrence: None)
  Receive Date: 20060508
  Receipt Date: 20060426
  Transmission Date: 20061013
  Serious: Yes (Other)
  Sender: FDA-Public Use
  Company Number: 2006SE02413

PATIENT
  Age: 64 Year
  Sex: Male

DRUGS (4)
  1. SEROQUEL [Suspect]
     Indication: BIPOLAR DISORDER
     Route: 048
     Dates: start: 20060320
  2. CYMBALTA [Interacting]
     Indication: BIPOLAR DISORDER
     Route: 048
     Dates: start: 20060411
  3. VALLERGAN [Concomitant]
  4. LAMOTRIGINE [Concomitant]
     Dosage: DOSE TO BE INCREASED TO 200 MG GRADUALLY OVER SIX WEEKS
     Route: 048

REACTIONS (3)
  - AKATHISIA [None]
  - DRUG INTERACTION [None]
  - TARDIVE DYSKINESIA [None]
